FAERS Safety Report 5501018-8 (Version None)
Quarter: 2007Q4

REPORT INFORMATION
  Report Type: 
  Country: None (occurrence: None)
  Receive Date: 20071029
  Receipt Date: 20071017
  Transmission Date: 20080405
  Serious: Yes (Hospitalization, Other)
  Sender: FDA-Public Use
  Company Number: PHFR2007GB03095

PATIENT
  Age: 74 Year
  Sex: Female

DRUGS (2)
  1. GLEEVEC [Suspect]
     Indication: CHRONIC MYELOID LEUKAEMIA
     Dosage: 400MG/UNK
     Dates: start: 20050209
  2. GLEEVEC [Suspect]
     Dosage: 600MG/UNK

REACTIONS (4)
  - ALOPECIA [None]
  - HIP ARTHROPLASTY [None]
  - NAUSEA [None]
  - SPONDYLOLISTHESIS [None]
